FAERS Safety Report 11981024 (Version 2)
Quarter: 2016Q1

REPORT INFORMATION
  Report Type: Report from Study
  Country: FR (occurrence: FR)
  Receive Date: 20160129
  Receipt Date: 20160209
  Transmission Date: 20160526
  Serious: Yes (Hospitalization, Other)
  Sender: FDA-Public Use
  Company Number: FR-B.I. PHARMACEUTICALS,INC./RIDGEFIELD-2016-BI-03796II

PATIENT
  Age: 73 Year
  Sex: Female

DRUGS (9)
  1. BIBF 1120 [Suspect]
     Active Substance: NINTEDANIB
     Indication: FALLOPIAN TUBE CANCER
     Dosage: 300 MG
     Route: 048
     Dates: end: 20150324
  2. CARBOPLATIN. [Suspect]
     Active Substance: CARBOPLATIN
     Indication: FALLOPIAN TUBE CANCER
     Dosage: 450 MG
     Route: 065
     Dates: end: 20150304
  3. CARBOPLATIN. [Suspect]
     Active Substance: CARBOPLATIN
     Indication: MALIGNANT PERITONEAL NEOPLASM
  4. PACLITAXEL. [Suspect]
     Active Substance: PACLITAXEL
     Indication: FALLOPIAN TUBE CANCER
  5. BIBF 1120 [Suspect]
     Active Substance: NINTEDANIB
     Indication: MALIGNANT PERITONEAL NEOPLASM
  6. BIBF 1120 [Suspect]
     Active Substance: NINTEDANIB
     Indication: OVARIAN CANCER
     Dosage: 400 MG
     Route: 048
     Dates: start: 20141225, end: 20150210
  7. PACLITAXEL. [Suspect]
     Active Substance: PACLITAXEL
     Indication: OVARIAN CANCER
     Dosage: 240 MG
     Route: 042
     Dates: start: 20141224, end: 20150304
  8. PACLITAXEL. [Suspect]
     Active Substance: PACLITAXEL
     Indication: MALIGNANT PERITONEAL NEOPLASM
  9. CARBOPLATIN. [Suspect]
     Active Substance: CARBOPLATIN
     Indication: OVARIAN CANCER
     Dosage: 700 MG
     Route: 042
     Dates: start: 20141224, end: 20150121

REACTIONS (8)
  - Fatigue [Recovered/Resolved]
  - General physical health deterioration [Recovered/Resolved]
  - Anaemia [Recovered/Resolved]
  - Febrile neutropenia [Recovered/Resolved]
  - Jaundice [Recovered/Resolved]
  - General physical health deterioration [Unknown]
  - Urinary tract infection [Recovered/Resolved]
  - Thrombocytopenia [Recovered/Resolved]

NARRATIVE: CASE EVENT DATE: 20150216
